FAERS Safety Report 7272390-6 (Version None)
Quarter: 2011Q1

REPORT INFORMATION
  Report Type: 
  Country: None (occurrence: None)
  Receive Date: 20110131
  Receipt Date: 20110131
  Transmission Date: 20110831
  Serious: Yes (Hospitalization, Disabling)
  Sender: FDA-Public Use
  Company Number: None

PATIENT
  Age: 63 Year
  Sex: Male
  Weight: 131.5 kg

DRUGS (4)
  1. VANCOMYCIN [Suspect]
     Indication: INFECTION
     Dosage: 1500 MG BID IV
     Route: 042
     Dates: start: 20101202, end: 20110110
  2. VANCOMYCIN [Suspect]
     Indication: SURGERY
     Dosage: 1500 MG BID IV
     Route: 042
     Dates: start: 20101202, end: 20110110
  3. CIPROFLOXACIN [Suspect]
     Indication: INFECTION
     Dosage: 750 MG BID PO
     Route: 048
     Dates: start: 20101203, end: 20110110
  4. CIPROFLOXACIN [Suspect]
     Indication: SURGERY
     Dosage: 750 MG BID PO
     Route: 048
     Dates: start: 20101203, end: 20110110

REACTIONS (7)
  - RASH PRURITIC [None]
  - RENAL FAILURE ACUTE [None]
  - CHILLS [None]
  - EOSINOPHILIA [None]
  - PYREXIA [None]
  - URTICARIA [None]
  - RASH MACULO-PAPULAR [None]
